FAERS Safety Report 10238118 (Version 1)
Quarter: 2014Q2

REPORT INFORMATION
  Report Type: Spontaneous
  Country: FR (occurrence: FR)
  Receive Date: 20140616
  Receipt Date: 20140616
  Transmission Date: 20141212
  Serious: Yes (Hospitalization)
  Sender: FDA-Public Use
  Company Number: PHHY2014FR073105

PATIENT
  Age: 85 Year
  Sex: Female

DRUGS (10)
  1. TASIGNA [Suspect]
     Indication: ACUTE LYMPHOCYTIC LEUKAEMIA
     Dosage: UNK
     Route: 048
     Dates: start: 20140424
  2. TASIGNA [Suspect]
     Indication: OFF LABEL USE
  3. VINCRISTINE [Suspect]
     Indication: ACUTE LYMPHOCYTIC LEUKAEMIA
     Dosage: 2 DF
     Route: 042
     Dates: start: 20140424, end: 20140508
  4. VINCRISTINE [Suspect]
     Dosage: UNK
  5. DEXAMETHASONE [Suspect]
     Indication: ACUTE LYMPHOCYTIC LEUKAEMIA
     Dosage: 2 DF
     Dates: start: 20140424, end: 20140508
  6. DEXAMETHASONE [Suspect]
     Dosage: UNK
  7. COUMADINE [Concomitant]
     Dosage: UNK
  8. CARBOSYMAG                              /FRA/ [Concomitant]
  9. DAFALGAN [Concomitant]
  10. ALENDRONATE [Concomitant]

REACTIONS (1)
  - Pleural effusion [Not Recovered/Not Resolved]
